FAERS Safety Report 23310115 (Version 1)
Quarter: 2023Q4

REPORT INFORMATION
  Report Type: Spontaneous
  Country: DE (occurrence: None)
  Receive Date: 20231218
  Receipt Date: 20231218
  Transmission Date: 20240109
  Serious: Yes (Life-Threatening, Other)
  Sender: FDA-Public Use
  Company Number: 2023A286194

PATIENT
  Age: 67 Year
  Sex: Female

DRUGS (10)
  1. DAPAGLIFLOZIN [Suspect]
     Active Substance: DAPAGLIFLOZIN
     Route: 048
  2. SACUBITRILE [Concomitant]
  3. SPIRONOLACTONE [Concomitant]
     Active Substance: SPIRONOLACTONE
  4. ATORVASTATIN [Concomitant]
     Active Substance: ATORVASTATIN
  5. FUROSEMIDE [Concomitant]
     Active Substance: FUROSEMIDE
  6. RIVAROXABAN [Concomitant]
     Active Substance: RIVAROXABAN
  7. LEVOTHYROXINE [Concomitant]
     Active Substance: LEVOTHYROXINE
  8. VALSARTAN [Concomitant]
     Active Substance: VALSARTAN
  9. IRON GLYCINE SULPHATE [Concomitant]
  10. VERICIGUAT [Concomitant]
     Active Substance: VERICIGUAT

REACTIONS (8)
  - Cardiac failure [Unknown]
  - Dilated cardiomyopathy [Unknown]
  - Mitral valve incompetence [Unknown]
  - Subclavian vein thrombosis [Unknown]
  - Subclavian vein occlusion [Unknown]
  - Cardiogenic shock [Unknown]
  - Bundle branch block [Unknown]
  - COVID-19 [Unknown]

NARRATIVE: CASE EVENT DATE: 20220601
